FAERS Safety Report 8821560 (Version 2)
Quarter: 2012Q4

REPORT INFORMATION
  Report Type: 
  Country: US (occurrence: US)
  Receive Date: 20121002
  Receipt Date: 20121029
  Transmission Date: 20130627
  Serious: Yes (Other)
  Sender: FDA-Public Use
  Company Number: CHPA2012US020329

PATIENT
  Age: 77 Year
  Sex: Female

DRUGS (2)
  1. BENEFIBER UNKNOWN [Suspect]
     Indication: NUTRITIONAL SUPPORT
     Dosage: 2 TSP, QD
     Route: 048
  2. BENEFIBER STICK PACKS [Suspect]
     Dosage: 1 PACK, Unk
     Route: 048

REACTIONS (2)
  - Pneumonia [Recovered/Resolved]
  - Irritable bowel syndrome [Not Recovered/Not Resolved]
